FAERS Safety Report 5644066-X (Version None)
Quarter: 2008Q1

REPORT INFORMATION
  Report Type: 
  Country: None (occurrence: None)
  Receive Date: 20080226
  Receipt Date: 20080212
  Transmission Date: 20080703
  Serious: Yes (Hospitalization)
  Sender: FDA-Public Use
  Company Number: B0509200A

PATIENT
  Age: 24 Year
  Sex: Female

DRUGS (14)
  1. ZOFRAN [Suspect]
     Dosage: INTRAVENOUS
     Route: 042
     Dates: end: 20080113
  2. ACETAMINOPHEN [Suspect]
     Dosage: INJECTION
     Dates: end: 20080112
  3. KETOPROFEN (FORMULATION UNKNOWN) (KETOPROFEN) [Suspect]
     Dosage: INJECTION
     Dates: end: 20080113
  4. NEFOPAM HYDROCHLORIDE (FORMULATION UNKNOWN) (NEFOPAM HYDROCHLORIDE) [Suspect]
     Dosage: INJECTION
     Dates: end: 20080111
  5. DROPERIDOL [Suspect]
     Dosage: INJECTION
     Dates: end: 20080111
  6. NITROUS OXIDE (FORMULATION UNKNOWN) (NITROUS OXIDE) [Suspect]
     Dates: end: 20080111
  7. PROPOFOL [Suspect]
     Dosage: INJECTION
     Dates: end: 20080111
  8. MIDAZOLAM HYDROCHLORIDE (FORMULATION UNKNOWN) (MIDAZOLAM HYDROCHLORIDE [Suspect]
     Dosage: INJECTION
     Dates: end: 20080111
  9. KETAMINE HYDROCHLORIDE (FORMULATION UNKNOWN) (KETAMINE HYDROCHLORIDE) [Suspect]
     Dosage: INJECTION
     Dates: end: 20080111
  10. SUFENTANIL CITRATE [Suspect]
     Dosage: INTRAVENOUS
     Route: 042
     Dates: end: 20080111
  11. ESOMEPRAZOLE (FORMULATION UNKNOWN) (ESOMPERAZOLE) [Suspect]
     Dates: end: 20080111
  12. TETRAZEPAM (FORMULATION UNKNOWN) (TETRAZEPAM) [Suspect]
     Dates: end: 20080111
  13. MORPHINE [Suspect]
     Dates: end: 20080114
  14. ENOXAPARIN (FORMULATION UNKNOWN) (ENOXAPARIN) [Suspect]
     Dosage: INJECTION
     Dates: end: 20080114

REACTIONS (3)
  - ACUTE GENERALISED EXANTHEMATOUS PUSTULOSIS [None]
  - BURNING SENSATION [None]
  - PRURITUS [None]
